FAERS Safety Report 18502246 (Version 1)
Quarter: 2020Q4

REPORT INFORMATION
  Report Type: Report from Study
  Country: US (occurrence: US)
  Receive Date: 20201113
  Receipt Date: 20201113
  Transmission Date: 20210114
  Serious: Yes (Hospitalization, Other)
  Sender: FDA-Public Use
  Company Number: US-ASTRAZENECA-2020SF07941

PATIENT
  Age: 23161 Day
  Sex: Male
  Weight: 99.8 kg

DRUGS (3)
  1. FASENRA [Suspect]
     Active Substance: BENRALIZUMAB
     Indication: ASTHMA
     Route: 058
     Dates: start: 20200413
  2. PRILOSEC [Suspect]
     Active Substance: OMEPRAZOLE MAGNESIUM
     Route: 048
  3. SYMBICORT [Suspect]
     Active Substance: BUDESONIDE\FORMOTEROL FUMARATE DIHYDRATE
     Dosage: 2 PUFF,TWO TIMES A DAY
     Route: 055

REACTIONS (7)
  - Acute respiratory failure [Recovered/Resolved]
  - Fibrin D dimer increased [Recovered/Resolved]
  - Asthma [Unknown]
  - COVID-19 pneumonia [Recovered/Resolved]
  - Hypocalcaemia [Recovered/Resolved]
  - Chronic obstructive pulmonary disease [Unknown]
  - Hypertension [Unknown]

NARRATIVE: CASE EVENT DATE: 20200807
